FAERS Safety Report 9858205 (Version 1)
Quarter: 2014Q1

REPORT INFORMATION
  Report Type: Spontaneous
  Country: CA (occurrence: None)
  Receive Date: 20140129
  Receipt Date: 20140129
  Transmission Date: 20141002
  Serious: Yes (Hospitalization)
  Sender: FDA-Public Use
  Company Number: 03_14

PATIENT
  Age: 15 Year
  Sex: Female

DRUGS (2)
  1. DRAXIMAGE MDP-25 [Suspect]
     Indication: BONE SCAN
     Dosage: 1 DOSE OF 16.3 MCI I.V
     Route: 042
     Dates: start: 20140124
  2. EPIPEN [Concomitant]

REACTIONS (2)
  - Neurogenic shock [None]
  - Anaphylactic reaction [None]
